FAERS Safety Report 5807440-4 (Version None)
Quarter: 2008Q3

REPORT INFORMATION
  Report Type: 
  Country: None (occurrence: None)
  Receive Date: 20080711
  Receipt Date: 20080709
  Transmission Date: 20090109
  Serious: Yes (Hospitalization)
  Sender: FDA-Public Use
  Company Number: IT-MERCK-0807ITA00021

PATIENT
  Age: 80 Year
  Sex: Female

DRUGS (1)
  1. NOROXIN [Suspect]
     Route: 065

REACTIONS (2)
  - EPILEPSY [None]
  - HEMIPARESIS [None]
